FAERS Safety Report 6705980-7 (Version None)
Quarter: 2010Q2

REPORT INFORMATION
  Report Type: 
  Country: None (occurrence: None)
  Receive Date: 20100430
  Receipt Date: 20100430
  Transmission Date: 20101027
  Serious: Yes (Other)
  Sender: FDA-Public Use
  Company Number: None

PATIENT
  Age: 40 Year
  Sex: Female
  Weight: 40.8237 kg

DRUGS (1)
  1. TOPAMAX [Suspect]
     Indication: MIGRAINE
     Dosage: BID PO
     Route: 048

REACTIONS (3)
  - ABNORMAL BEHAVIOUR [None]
  - MANIA [None]
  - MENTAL STATUS CHANGES [None]
